FAERS Safety Report 7320243-7 (Version None)
Quarter: 2011Q1

REPORT INFORMATION
  Report Type: 
  Country: None (occurrence: None)
  Receive Date: 20110228
  Receipt Date: 20110224
  Transmission Date: 20110831
  Serious: Yes (Life-Threatening, Hospitalization)
  Sender: FDA-Public Use
  Company Number: FR-B.I. PHARMACEUTICALS,INC./RIDGEFIELD-2011-FF-00196FF

PATIENT
  Sex: Male

DRUGS (1)
  1. PRADAXA [Suspect]
     Indication: KNEE ARTHROPLASTY
     Route: 048

REACTIONS (4)
  - FALL [None]
  - SUBDURAL HAEMATOMA [None]
  - CEREBRAL HAEMATOMA [None]
  - COMA [None]
